FAERS Safety Report 12879894 (Version 2)
Quarter: 2017Q1

REPORT INFORMATION
  Report Type: Spontaneous
  Country: US (occurrence: US)
  Receive Date: 20161025
  Receipt Date: 20170213
  Transmission Date: 20170428
  Serious: No
  Sender: FDA-Public Use
  Company Number: US-PFIZER INC-2016490234

PATIENT
  Sex: Female

DRUGS (1)
  1. NIFEDIPINE. [Suspect]
     Active Substance: NIFEDIPINE
     Indication: IRRITABLE BOWEL SYNDROME
     Dosage: 30 MG, UNK

REACTIONS (2)
  - Reaction to drug excipients [Unknown]
  - Product use issue [Unknown]
